FAERS Safety Report 9536109 (Version 1)
Quarter: 2013Q3

REPORT INFORMATION
  Report Type: Report from Study
  Country: US (occurrence: US)
  Receive Date: 20130919
  Receipt Date: 20130919
  Transmission Date: 20140515
  Serious: Yes (Death, Other)
  Sender: FDA-Public Use
  Company Number: US-ASTRAZENECA-2013SE69549

PATIENT
  Age: 84 Year
  Sex: Male

DRUGS (2)
  1. SYMBICORT [Suspect]
     Indication: CHRONIC OBSTRUCTIVE PULMONARY DISEASE
     Dosage: 160/4.5MCG, OF UNKNOWN FREQUENCY
     Route: 055
     Dates: start: 2013
  2. BLOOD PRESSURE MEDICATIONS [Concomitant]
     Indication: BLOOD PRESSURE ABNORMAL

REACTIONS (3)
  - Death [Fatal]
  - Aortic aneurysm [Not Recovered/Not Resolved]
  - Intentional drug misuse [Unknown]
